FAERS Safety Report 6541128-X (Version None)
Quarter: 2010Q1

REPORT INFORMATION
  Report Type: 
  Country: None (occurrence: None)
  Receive Date: 20100118
  Receipt Date: 20100107
  Transmission Date: 20100710
  Serious: Yes (Hospitalization)
  Sender: FDA-Public Use
  Company Number: US-BAYER-201011111NA

PATIENT
  Age: 64 Year
  Sex: Female
  Weight: 66 kg

DRUGS (12)
  1. SORAFENIB OR PLACEBO [Suspect]
     Indication: BREAST CANCER METASTATIC
     Dosage: TOTAL DAILY DOSE: 800 MG  UNIT DOSE: 200 MG
     Route: 048
     Dates: start: 20091222, end: 20100104
  2. GEMZAR [Suspect]
     Indication: BREAST CANCER METASTATIC
     Dosage: UNIT DOSE: 1000 MG/M2
     Route: 042
     Dates: start: 20091222, end: 20091229
  3. PAXIL [Concomitant]
  4. DIOVAN [Concomitant]
  5. ATENOLOL [Concomitant]
  6. LIPITOR [Concomitant]
  7. PRILOSEC [Concomitant]
  8. DILTIAZEM [Concomitant]
  9. IMODIUM [Concomitant]
  10. MINOCYCLINE [Concomitant]
  11. POTASSIUM [Concomitant]
  12. PEPCID [Concomitant]

REACTIONS (3)
  - DIARRHOEA [None]
  - HYPOVOLAEMIA [None]
  - RASH [None]
